FAERS Safety Report 11541021 (Version 1)
Quarter: 2015Q3

REPORT INFORMATION
  Report Type: Spontaneous
  Country: JP (occurrence: JP)
  Receive Date: 20150923
  Receipt Date: 20150923
  Transmission Date: 20151125
  Serious: Yes (Hospitalization)
  Sender: FDA-Public Use
  Company Number: JP-TEVA-595347ISR

PATIENT
  Age: 83 Year
  Sex: Female

DRUGS (4)
  1. MELOXICAM. [Suspect]
     Active Substance: MELOXICAM
     Indication: ARTHRALGIA
     Dosage: 10 MILLIGRAM DAILY;
     Route: 065
  2. MELOXICAM. [Suspect]
     Active Substance: MELOXICAM
     Indication: MUSCULOSKELETAL PAIN
  3. LANSOPRAZOLE. [Concomitant]
     Active Substance: LANSOPRAZOLE
     Dosage: 15 MILLIGRAM DAILY;
     Route: 065
  4. ZALTOPROFEN [Suspect]
     Active Substance: ZALTOPROFEN
     Indication: ARTHRALGIA
     Dosage: 160 MILLIGRAM DAILY; ADMINISTRATION WAS STOPPED 6 MONTHS BEFORE AE
     Route: 065

REACTIONS (4)
  - Gastrointestinal disorder [Recovered/Resolved]
  - Small intestinal stenosis [Recovered/Resolved]
  - Helicobacter infection [Recovered/Resolved]
  - Hiatus hernia [Recovered/Resolved]
